FAERS Safety Report 19647272 (Version 1)
Quarter: 2021Q3

REPORT INFORMATION
  Report Type: Report from Study
  Country: US (occurrence: US)
  Receive Date: 20210802
  Receipt Date: 20210802
  Transmission Date: 20211014
  Serious: Yes (Other)
  Sender: FDA-Public Use
  Company Number: US-GLAXOSMITHKLINE-US2021AMR162865

PATIENT
  Age: 82 Year
  Sex: Female

DRUGS (3)
  1. BELANTAMAB MAFODOTIN. [Suspect]
     Active Substance: BELANTAMAB MAFODOTIN
     Dosage: 139 MG
     Dates: start: 20200601
  2. BELANTAMAB MAFODOTIN. [Suspect]
     Active Substance: BELANTAMAB MAFODOTIN
     Indication: PLASMA CELL MYELOMA
     Dosage: 139 MG
     Dates: start: 20200511
  3. BELANTAMAB MAFODOTIN. [Suspect]
     Active Substance: BELANTAMAB MAFODOTIN
     Dosage: 69 MG
     Dates: start: 202006

REACTIONS (6)
  - Corneal disorder [Recovered/Resolved]
  - Fatigue [Unknown]
  - Blindness [Recovered/Resolved]
  - Visual impairment [Recovered/Resolved]
  - Photophobia [Not Recovered/Not Resolved]
  - Corneal cyst [Unknown]

NARRATIVE: CASE EVENT DATE: 20210712
